FAERS Safety Report 4595694-4 (Version None)
Quarter: 2005Q1

REPORT INFORMATION
  Report Type: 
  Country: None (occurrence: None)
  Receive Date: 20050223
  Receipt Date: 20050223
  Transmission Date: 20050727
  Serious: Yes (Hospitalization)
  Sender: FDA-Public Use
  Company Number: None

PATIENT
  Age: 56 Year
  Sex: Male
  Weight: 89.8122 kg

DRUGS (3)
  1. PREDNISONE 20 MG [Suspect]
     Indication: CHRONIC OBSTRUCTIVE PULMONARY DISEASE
     Dosage: 20 MG PO DAILY (STEROID DEPENDANT X 17 YRS (?)]
     Route: 048
  2. POTASSIUM CHLORIDE [Suspect]
     Indication: CARDIAC FAILURE
     Dosage: 20 MEQ PO DAILY
     Route: 048
  3. LISINOPRIL [Suspect]

REACTIONS (4)
  - BLOOD POTASSIUM INCREASED [None]
  - DIZZINESS [None]
  - ELECTROCARDIOGRAM ABNORMAL [None]
  - VISION BLURRED [None]
